FAERS Safety Report 4900504-9 (Version None)
Quarter: 2006Q1

REPORT INFORMATION
  Report Type: 
  Country: None (occurrence: None)
  Receive Date: 20060203
  Receipt Date: 20050930
  Transmission Date: 20060701
  Serious: Yes (Death, Hospitalization)
  Sender: FDA-Public Use
  Company Number: US-MERCK-0510USA01910

PATIENT
  Age: 89 Year
  Sex: Female
  Weight: 60 kg

DRUGS (5)
  1. VIOXX [Suspect]
     Indication: OSTEOARTHRITIS
     Route: 048
     Dates: start: 20010101, end: 20040901
  2. VIOXX [Suspect]
     Indication: RHEUMATOID ARTHRITIS
     Route: 048
     Dates: start: 20010101, end: 20040901
  3. CELEBREX [Concomitant]
     Route: 065
  4. LASIX [Concomitant]
     Route: 065
  5. TOPROL-XL [Concomitant]
     Route: 048
     Dates: start: 20010101, end: 20040901

REACTIONS (4)
  - ADVERSE EVENT [None]
  - CARDIAC FAILURE CONGESTIVE [None]
  - CEREBROVASCULAR ACCIDENT [None]
  - RENAL FAILURE [None]
